FAERS Safety Report 23998180 (Version 1)
Quarter: 2024Q2

REPORT INFORMATION
  Report Type: Spontaneous
  Country: FR (occurrence: FR)
  Receive Date: 20240621
  Receipt Date: 20240621
  Transmission Date: 20240715
  Serious: Yes (Other)
  Sender: FDA-Public Use
  Company Number: FR-AFSSAPS-BX2024001158

PATIENT
  Age: 51 Year
  Sex: Female

DRUGS (3)
  1. CARBOPLATIN [Suspect]
     Active Substance: CARBOPLATIN
     Indication: Triple negative breast cancer
     Dosage: NON PR?CIS?E (NOT SPECIFIED)
     Route: 042
     Dates: start: 20240312
  2. PACLITAXEL [Suspect]
     Active Substance: PACLITAXEL
     Indication: Triple negative breast cancer
     Dosage: 80 MILLIGRAM/SQ. METER, EVERY WEEK (J1,J8 ET J15 TOUTES LES 3 SEMAINES(D1, D8 AND D15 EVERY 3 WEEKS)
     Route: 042
     Dates: start: 20240312
  3. KEYTRUDA [Suspect]
     Active Substance: PEMBROLIZUMAB
     Indication: Triple negative breast cancer
     Dosage: 200 MILLIGRAM, EVERY 3 WEEK
     Route: 042
     Dates: start: 20240312, end: 20240416

REACTIONS (1)
  - Autoimmune colitis [Recovering/Resolving]

NARRATIVE: CASE EVENT DATE: 20240409
